FAERS Safety Report 24262483 (Version 2)
Quarter: 2025Q3

REPORT INFORMATION
  Report Type: Spontaneous
  Country: US (occurrence: US)
  Receive Date: 20240829
  Receipt Date: 20250904
  Transmission Date: 20251020
  Serious: No
  Sender: BOSTON SCIENTIFIC
  Company Number: US-BSC-2024000076

PATIENT
  Age: 73 Year
  Sex: Female

DRUGS (1)
  1. VARITHENA [Suspect]
     Active Substance: POLIDOCANOL
     Indication: Endovenous ablation

REACTIONS (6)
  - Peripheral swelling [Unknown]
  - Skin ulcer [Unknown]
  - Burning sensation [Unknown]
  - Erythema [Unknown]
  - Pain [Unknown]
  - Surgical failure [Unknown]

NARRATIVE: CASE EVENT DATE: 20240222
